FAERS Safety Report 12543625 (Version 1)
Quarter: 2016Q3

REPORT INFORMATION
  Report Type: Spontaneous
  Country: US (occurrence: None)
  Receive Date: 20160708
  Receipt Date: 20160708
  Transmission Date: 20161109
  Serious: Yes (Life-Threatening, Hospitalization)
  Sender: FDA-Public Use
  Company Number: None

PATIENT
  Age: 63 Year
  Sex: Female

DRUGS (1)
  1. LISINOPRIL. [Suspect]
     Active Substance: LISINOPRIL
     Indication: HYPERTENSION
     Route: 048
     Dates: start: 20160523, end: 20160624

REACTIONS (4)
  - Neck pain [None]
  - Local swelling [None]
  - Hypersensitivity [None]
  - Musculoskeletal stiffness [None]

NARRATIVE: CASE EVENT DATE: 20160624
